FAERS Safety Report 6635267-2 (Version None)
Quarter: 2010Q1

REPORT INFORMATION
  Report Type: 
  Country: None (occurrence: None)
  Receive Date: 20100315
  Receipt Date: 20100310
  Transmission Date: 20100710
  Serious: Yes (Congenital Anomaly)
  Sender: FDA-Public Use
  Company Number: GB-B.I. PHARMACEUTICALS,INC./RIDGEFIELD-2008-BP-01314BP

PATIENT

DRUGS (5)
  1. VIRAMUNE [Suspect]
     Indication: HIV INFECTION
     Dosage: 200 MG
     Route: 064
     Dates: start: 20070816, end: 20070830
  2. EFAVIRENZ [Suspect]
     Indication: HIV INFECTION
     Dosage: 600 MG
     Route: 064
     Dates: start: 20021001, end: 20070816
  3. KIVEXA [Suspect]
     Indication: HIV INFECTION
     Route: 064
     Dates: start: 20070101, end: 20070901
  4. COMBIVIR [Suspect]
     Indication: HIV INFECTION
     Dosage: 2 DF
     Route: 064
     Dates: start: 20070801, end: 20070905
  5. KALETRA [Suspect]
     Indication: HIV INFECTION
     Route: 064
     Dates: start: 20070920

REACTIONS (6)
  - CARDIAC MALPOSITION [None]
  - CONGENITAL HEPATOBILIARY ANOMALY [None]
  - DEFORMITY THORAX [None]
  - DIAPHRAGMATIC APLASIA [None]
  - EXOMPHALOS [None]
  - MICROCEPHALY [None]
